APPROVED DRUG PRODUCT: TIZANIDINE HYDROCHLORIDE
Active Ingredient: TIZANIDINE HYDROCHLORIDE
Strength: EQ 8MG BASE
Dosage Form/Route: CAPSULE;ORAL
Application: A213798 | Product #004
Applicant: RUBICON RESEARCH LTD
Approved: Aug 28, 2025 | RLD: No | RS: Yes | Type: RX